FAERS Safety Report 16001328 (Version 2)
Quarter: 2019Q1

REPORT INFORMATION
  Report Type: Spontaneous
  Country: US (occurrence: US)
  Receive Date: 20190225
  Receipt Date: 20190328
  Transmission Date: 20190418
  Serious: Yes (Hospitalization, Other)
  Sender: FDA-Public Use
  Company Number: US-TEVA-2019-US-1016935

PATIENT
  Sex: Female

DRUGS (2)
  1. SORIATANE [Suspect]
     Active Substance: ACITRETIN
     Indication: KERATOSIS FOLLICULAR
     Dosage: 50 MILLIGRAM DAILY;
     Route: 065
  2. SORIATANE [Suspect]
     Active Substance: ACITRETIN
     Route: 065

REACTIONS (9)
  - Staphylococcal sepsis [Recovering/Resolving]
  - Stress [Unknown]
  - Intentional product use issue [Unknown]
  - Keratosis follicular [Not Recovered/Not Resolved]
  - Anxiety [Unknown]
  - Condition aggravated [Unknown]
  - Skin erosion [Unknown]
  - Ill-defined disorder [Unknown]
  - Erythema [Unknown]
